FAERS Safety Report 7199149-2 (Version None)
Quarter: 2010Q4

REPORT INFORMATION
  Report Type: 
  Country: None (occurrence: None)
  Receive Date: 20101228
  Receipt Date: 20101221
  Transmission Date: 20110411
  Serious: Yes (Other)
  Sender: FDA-Public Use
  Company Number: JP-ALLERGAN-1016682US

PATIENT
  Sex: Female

DRUGS (1)
  1. BOTOX INJECTION 100 [Suspect]
     Indication: PRODUCT USED FOR UNKNOWN INDICATION
     Dosage: UNK
     Route: 030
     Dates: start: 20101203, end: 20101203

REACTIONS (1)
  - LOWER LIMB FRACTURE [None]
